FAERS Safety Report 20429130 (Version 1)
Quarter: 2022Q1

REPORT INFORMATION
  Report Type: Spontaneous
  Country: DE (occurrence: DE)
  Receive Date: 20220204
  Receipt Date: 20220204
  Transmission Date: 20220423
  Serious: Yes (Other)
  Sender: FDA-Public Use
  Company Number: None

PATIENT
  Age: 40 Year

DRUGS (3)
  1. CLOPIDOGREL [Interacting]
     Active Substance: CLOPIDOGREL BISULFATE
     Indication: Product used for unknown indication
     Dosage: UNKNOWN
  2. HYPERICUM [Interacting]
     Active Substance: ST. JOHN^S WORT
     Indication: Product used for unknown indication
     Dosage: UNKNOWN
  3. ASPIRIN [Interacting]
     Active Substance: ASPIRIN
     Indication: Product used for unknown indication
     Dosage: UNKNOWN

REACTIONS (4)
  - Drug interaction [Unknown]
  - Condition aggravated [Unknown]
  - Carotid artery stenosis [Not Recovered/Not Resolved]
  - Muscle twitching [Unknown]

NARRATIVE: CASE EVENT DATE: 20211201
